FAERS Safety Report 6361532-2 (Version None)
Quarter: 2009Q3

REPORT INFORMATION
  Report Type: 
  Country: None (occurrence: None)
  Receive Date: 20090915
  Receipt Date: 20090915
  Transmission Date: 20100115
  Serious: Yes (Hospitalization)
  Sender: FDA-Public Use
  Company Number: None

PATIENT
  Sex: Male
  Weight: 54.9 kg

DRUGS (1)
  1. ARIXTRA [Suspect]
     Indication: PREOPERATIVE CARE
     Dosage: 7.5MG DAILY SQ
     Route: 058
     Dates: start: 20090905, end: 20090908

REACTIONS (4)
  - ABDOMINAL DISTENSION [None]
  - HAEMATOCRIT DECREASED [None]
  - HAEMOGLOBIN DECREASED [None]
  - INTRA-ABDOMINAL HAEMORRHAGE [None]
